FAERS Safety Report 9658774 (Version 2)
Quarter: 2013Q4

REPORT INFORMATION
  Report Type: Spontaneous
  Country: US (occurrence: US)
  Receive Date: 20131030
  Receipt Date: 20131030
  Transmission Date: 20140711
  Serious: No
  Sender: FDA-Public Use
  Company Number: US-PURDUE-USA-2011-0070987

PATIENT
  Age: 59 Year
  Sex: Female

DRUGS (3)
  1. OXYCONTIN (NDA 22-272) [Suspect]
     Indication: PAIN
     Dosage: 80 MG, TID
     Dates: start: 2003
  2. LORCET                             /00607101/ [Concomitant]
     Indication: PAIN
     Dosage: 350 MG, QID
  3. SOMA [Concomitant]
     Indication: PRODUCT USED FOR UNKNOWN INDICATION
     Dosage: 350 MG, DAILY

REACTIONS (11)
  - Drug withdrawal syndrome [Recovered/Resolved]
  - Muscle spasms [Unknown]
  - General physical health deterioration [Recovered/Resolved]
  - Vomiting [Recovered/Resolved]
  - Decreased appetite [Recovered/Resolved]
  - Muscle twitching [Recovered/Resolved]
  - Pain [Recovered/Resolved]
  - Nausea [Unknown]
  - Diarrhoea [Unknown]
  - Malaise [Unknown]
  - Insomnia [Unknown]
